FAERS Safety Report 6199036-2 (Version None)
Quarter: 2009Q2

REPORT INFORMATION
  Report Type: 
  Country: None (occurrence: None)
  Receive Date: 20090519
  Receipt Date: 20090519
  Transmission Date: 20091009
  Serious: Yes (Hospitalization)
  Sender: FDA-Public Use
  Company Number: None

PATIENT
  Age: 66 Year
  Sex: Female
  Weight: 68.0396 kg

DRUGS (1)
  1. NEULASTA [Suspect]
     Indication: INFECTION PROPHYLAXIS
     Dosage: TO BE EVERY 2 WEEK
     Dates: start: 20090506

REACTIONS (7)
  - DYSPNOEA [None]
  - MUSCLE SPASMS [None]
  - PAIN [None]
  - RED BLOOD CELL COUNT DECREASED [None]
  - SPEECH DISORDER [None]
  - TREMOR [None]
  - WHITE BLOOD CELL COUNT DECREASED [None]
